FAERS Safety Report 9425915 (Version 1)
Quarter: 2013Q3

REPORT INFORMATION
  Report Type: Spontaneous
  Country: JP (occurrence: JP)
  Receive Date: 20130729
  Receipt Date: 20130729
  Transmission Date: 20140515
  Serious: Yes (Hospitalization)
  Sender: FDA-Public Use
  Company Number: JP-ASTRAZENECA-2013SE50263

PATIENT
  Age: 44 Year
  Sex: Female

DRUGS (3)
  1. CARBOCAIN AMPOULE [Suspect]
     Indication: NERVE BLOCK
     Route: 053
     Dates: start: 20130626, end: 20130626
  2. DIBCALSOR [Suspect]
     Indication: NERVE BLOCK
     Route: 053
     Dates: start: 20130626, end: 20130626
  3. DIBCALSOR [Suspect]
     Indication: NEURALGIA
     Route: 053
     Dates: start: 20130626, end: 20130626

REACTIONS (9)
  - Hyperventilation [Recovered/Resolved]
  - Quadriplegia [Recovered/Resolved]
  - Toxicity to various agents [Unknown]
  - Convulsion [Recovered/Resolved]
  - Gait disturbance [Unknown]
  - Musculoskeletal stiffness [Unknown]
  - Pain in extremity [Unknown]
  - Muscular weakness [Unknown]
  - Hypoaesthesia [Not Recovered/Not Resolved]
